FAERS Safety Report 12311515 (Version 1)
Quarter: 2016Q2

REPORT INFORMATION
  Report Type: Other
  Country: JP (occurrence: JP)
  Receive Date: 20160427
  Receipt Date: 20160427
  Transmission Date: 20160815
  Serious: Yes (Other)
  Sender: FDA-Public Use
  Company Number: JP-MDT-ADR-2016-00756

PATIENT

DRUGS (1)
  1. GABALON [Suspect]
     Active Substance: BACLOFEN
     Route: 037

REACTIONS (1)
  - Adrenoleukodystrophy [Unknown]
